FAERS Safety Report 15391668 (Version 2)
Quarter: 2018Q4

REPORT INFORMATION
  Report Type: Spontaneous
  Country: JP (occurrence: JP)
  Receive Date: 20180917
  Receipt Date: 20181023
  Transmission Date: 20190204
  Serious: Yes (Death, Other)
  Sender: FDA-Public Use
  Company Number: JP-INCYTE CORPORATION-2018IN009433

PATIENT

DRUGS (1)
  1. JAKAVI [Suspect]
     Active Substance: RUXOLITINIB
     Indication: MYELOFIBROSIS
     Dosage: UNK
     Route: 048

REACTIONS (6)
  - Anaemia [Unknown]
  - Myelofibrosis [Unknown]
  - Leukaemia [Unknown]
  - White blood cell count increased [Unknown]
  - Infection [Fatal]
  - Platelet count decreased [Unknown]
